FAERS Safety Report 16198229 (Version 2)
Quarter: 2019Q2

REPORT INFORMATION
  Report Type: Report from Study
  Country: CA (occurrence: CA)
  Receive Date: 20190415
  Receipt Date: 20190618
  Transmission Date: 20190711
  Serious: No
  Sender: FDA-Public Use
  Company Number: CA-ROCHE-2291084

PATIENT
  Age: 35 Year
  Sex: Female

DRUGS (2)
  1. LYCOPODIUM [Concomitant]
     Indication: PRODUCT USED FOR UNKNOWN INDICATION
  2. OCREVUS [Suspect]
     Active Substance: OCRELIZUMAB
     Indication: RELAPSING-REMITTING MULTIPLE SCLEROSIS
     Dosage: 300 MG AT DAY 0 AND 14, THEN 600 MG EVERY 6 MONTH
     Route: 042
     Dates: start: 20190314

REACTIONS (4)
  - Blepharitis [Recovering/Resolving]
  - Eye disorder [Unknown]
  - Oral herpes [Not Recovered/Not Resolved]
  - Skin depigmentation [Not Recovered/Not Resolved]

NARRATIVE: CASE EVENT DATE: 20190322
